FAERS Safety Report 18990708 (Version 2)
Quarter: 2021Q1

REPORT INFORMATION
  Report Type: Spontaneous
  Country: JP (occurrence: JP)
  Receive Date: 20210310
  Receipt Date: 20210331
  Transmission Date: 20210420
  Serious: Yes (Other)
  Sender: FDA-Public Use
  Company Number: JP-JNJFOC-20210115759

PATIENT
  Sex: Male

DRUGS (8)
  1. INVEGA [Suspect]
     Active Substance: PALIPERIDONE
     Route: 048
     Dates: start: 202101, end: 202101
  2. INVEGA [Suspect]
     Active Substance: PALIPERIDONE
     Route: 048
     Dates: start: 20210119
  3. INVEGA [Suspect]
     Active Substance: PALIPERIDONE
     Route: 048
  4. HYPNOTICS AND SEDATIVES, ANTIANXIETICS [Concomitant]
     Active Substance: UNSPECIFIED INGREDIENT
     Indication: PRODUCT USED FOR UNKNOWN INDICATION
     Dosage: DOSE UNKNOWN
     Route: 065
  5. INVEGA [Suspect]
     Active Substance: PALIPERIDONE
     Indication: HALLUCINATION, AUDITORY
     Dosage: IN THE MORNING
     Route: 048
     Dates: start: 2020
  6. INVEGA [Suspect]
     Active Substance: PALIPERIDONE
     Dosage: AFTER BREAKFAST
     Route: 048
     Dates: start: 2021, end: 202101
  7. INVEGA [Suspect]
     Active Substance: PALIPERIDONE
     Route: 048
  8. INVEGA [Suspect]
     Active Substance: PALIPERIDONE
     Dosage: IN THE MORNING
     Route: 048
     Dates: start: 2021

REACTIONS (32)
  - Malaise [Not Recovered/Not Resolved]
  - Panic disorder [Not Recovered/Not Resolved]
  - Somnolence [Not Recovered/Not Resolved]
  - Pollakiuria [Unknown]
  - Wrong technique in product usage process [Unknown]
  - Mental impairment [Unknown]
  - Feeling abnormal [Unknown]
  - Dyspnoea [Unknown]
  - Aptyalism [Unknown]
  - Inappropriate schedule of product administration [Unknown]
  - Treatment noncompliance [Unknown]
  - Constipation [Unknown]
  - Nightmare [Unknown]
  - Polydipsia [Unknown]
  - Irritability [Unknown]
  - Aggression [Unknown]
  - Tongue dry [Unknown]
  - Lip pain [Unknown]
  - Hypoaesthesia [Unknown]
  - Delusion [Unknown]
  - Product dose omission issue [Unknown]
  - Dizziness postural [Unknown]
  - Cold sweat [Unknown]
  - Restlessness [Unknown]
  - Dizziness [Unknown]
  - Anger [Unknown]
  - Dreamy state [Unknown]
  - Glossodynia [Unknown]
  - Product use in unapproved indication [Unknown]
  - Off label use [Unknown]
  - Hypoglycaemia [Unknown]
  - Speech disorder [Unknown]

NARRATIVE: CASE EVENT DATE: 2020
